FAERS Safety Report 14667936 (Version 1)
Quarter: 2018Q1

REPORT INFORMATION
  Report Type: Spontaneous
  Country: US (occurrence: US)
  Receive Date: 20180322
  Receipt Date: 20180322
  Transmission Date: 20180509
  Serious: Yes (Other)
  Sender: FDA-Public Use
  Company Number: US-WEST-WARD PHARMACEUTICALS CORP.-US-H14001-18-02092

PATIENT
  Age: 60 Year
  Sex: Male

DRUGS (1)
  1. RISPERIDONE. [Suspect]
     Active Substance: RISPERIDONE
     Indication: POST-ANOXIC MYOCLONUS
     Dosage: ()
     Route: 065

REACTIONS (2)
  - Condition aggravated [Recovering/Resolving]
  - Hyperkinesia [Recovering/Resolving]
